FAERS Safety Report 6271782-1 (Version None)
Quarter: 2009Q3

REPORT INFORMATION
  Report Type: 
  Country: None (occurrence: None)
  Receive Date: 20090717
  Receipt Date: 20090710
  Transmission Date: 20100115
  Serious: Yes (Other)
  Sender: FDA-Public Use
  Company Number: GB-TEVA-151077ISR

PATIENT
  Sex: Female

DRUGS (15)
  1. AZILECT [Suspect]
     Indication: PARKINSON'S DISEASE
     Route: 048
     Dates: start: 20051219
  2. FORTISIP [Concomitant]
     Dates: start: 20061017
  3. ACETAZOLAMIDE [Concomitant]
     Dates: start: 20061119
  4. ACETYLSALICYLIC ACID [Concomitant]
     Route: 048
     Dates: start: 20061201
  5. DOMPERIDONE [Concomitant]
     Route: 048
     Dates: start: 20061031
  6. NORTRIPTYLINE HCL [Concomitant]
     Dates: start: 20061206
  7. DIPHENHYDRAMINE HCL [Concomitant]
     Route: 048
     Dates: start: 20061024
  8. MADOPAR [Concomitant]
     Route: 048
  9. RISPERIDONE [Concomitant]
  10. OMEPRAZOLE [Concomitant]
     Route: 048
     Dates: start: 20061107
  11. PRAMIPEXOLE DIHYDROCHLORIDE [Concomitant]
     Dates: start: 20061022
  12. PRAMIPEXOLE DIHYDROCHLORIDE [Concomitant]
     Route: 048
     Dates: start: 20061031
  13. ROTIGOTINE [Concomitant]
     Dosage: NEUPRO 2 MG/24 H TRANSDERMAL PATCH
     Route: 062
     Dates: start: 20061128
  14. ESTRIOL [Concomitant]
     Dosage: 0.01%
     Route: 067
     Dates: start: 20061022
  15. MOVELAT [Concomitant]

REACTIONS (1)
  - BREATH SOUNDS ABNORMAL [None]
